FAERS Safety Report 12770134 (Version 2)
Quarter: 2016Q4

REPORT INFORMATION
  Report Type: Spontaneous
  Country: US (occurrence: US)
  Receive Date: 20160922
  Receipt Date: 20161013
  Transmission Date: 20170207
  Serious: No
  Sender: FDA-Public Use
  Company Number: US-PFIZER INC-2016441004

PATIENT
  Age: 70 Year

DRUGS (7)
  1. SUMATRIPTAN SUCCINATE. [Suspect]
     Active Substance: SUMATRIPTAN SUCCINATE
  2. ASA [Suspect]
     Active Substance: ASPIRIN
  3. LYRICA [Suspect]
     Active Substance: PREGABALIN
  4. PREGABALIN. [Suspect]
     Active Substance: PREGABALIN
  5. IMITREX [Suspect]
     Active Substance: SUMATRIPTAN SUCCINATE
  6. CODEINE [Suspect]
     Active Substance: CODEINE
  7. BACTRIM [Suspect]
     Active Substance: SULFAMETHOXAZOLE\TRIMETHOPRIM

REACTIONS (1)
  - Drug hypersensitivity [Unknown]
